FAERS Safety Report 17166320 (Version 1)
Quarter: 2019Q4

REPORT INFORMATION
  Report Type: Spontaneous
  Country: CN (occurrence: CN)
  Receive Date: 20191217
  Receipt Date: 20191217
  Transmission Date: 20200122
  Serious: Yes (Other)
  Sender: FDA-Public Use
  Company Number: CN-PFIZER INC-2019537435

PATIENT
  Age: 84 Year
  Sex: Male
  Weight: 70 kg

DRUGS (1)
  1. LINEZOLID. [Suspect]
     Active Substance: LINEZOLID
     Indication: ANTI-INFECTIVE THERAPY
     Dosage: 0.6 G, 2X/DAY
     Route: 048
     Dates: start: 20191122, end: 20191129

REACTIONS (7)
  - Decreased appetite [Unknown]
  - Pulse abnormal [Unknown]
  - Skin atrophy [Unknown]
  - Tongue disorder [Unknown]
  - Listless [Unknown]
  - Cachexia [Unknown]
  - Abnormal behaviour [Recovering/Resolving]

NARRATIVE: CASE EVENT DATE: 20191129
